FAERS Safety Report 4382911-9 (Version None)
Quarter: 2004Q2

REPORT INFORMATION
  Report Type: 
  Country: None (occurrence: None)
  Receive Date: 20040617
  Receipt Date: 20040607
  Transmission Date: 20050107
  Serious: Yes (Other)
  Sender: FDA-Public Use
  Company Number: 2004028513

PATIENT
  Sex: Female

DRUGS (9)
  1. NEURONTIN [Suspect]
     Indication: ILL-DEFINED DISORDER
     Dosage: SEE IMAGE
     Route: 048
     Dates: start: 19980101, end: 20020101
  2. NEURONTIN [Suspect]
     Indication: ILL-DEFINED DISORDER
     Dosage: SEE IMAGE
     Route: 048
     Dates: start: 20020101
  3. VICODIN [Concomitant]
  4. CETIRIZINE HCL [Concomitant]
  5. LIDOCAINE [Concomitant]
  6. LACTULOSE [Concomitant]
  7. SALMETROL XINAFOATE (SALMETEROL XINAFOATE) [Concomitant]
  8. DOXEPIN HCL [Concomitant]
  9. SALBUTAMOL (SALBUTAMOL) [Concomitant]

REACTIONS (3)
  - DYSGEUSIA [None]
  - PHARMACEUTICAL PRODUCT COMPLAINT [None]
  - SURGERY [None]
